FAERS Safety Report 5346846-7 (Version None)
Quarter: 2007Q2

REPORT INFORMATION
  Report Type: 
  Country: None (occurrence: None)
  Receive Date: 20070605
  Receipt Date: 20070522
  Transmission Date: 20071010
  Serious: Yes (Other)
  Sender: FDA-Public Use
  Company Number: NL-PFIZER INC-2007044129

PATIENT
  Sex: Male

DRUGS (2)
  1. ATARAX [Suspect]
     Indication: URTICARIA
     Dates: start: 20070427, end: 20070501
  2. DESLORATADINE [Concomitant]
     Dates: start: 20070427, end: 20070511

REACTIONS (2)
  - NIGHTMARE [None]
  - SOPOR [None]
